FAERS Safety Report 19166239 (Version 1)
Quarter: 2021Q2

REPORT INFORMATION
  Report Type: Spontaneous
  Country: US (occurrence: US)
  Receive Date: 20210420
  Receipt Date: 20210420
  Transmission Date: 20210717
  Serious: No
  Sender: FDA-Public Use
  Company Number: None

PATIENT
  Age: 80 Year
  Sex: Male
  Weight: 78.71 kg

DRUGS (12)
  1. LACTULOSE 20 ML [Concomitant]
  2. ACETAMINOPHEN 650 MG [Concomitant]
     Active Substance: ACETAMINOPHEN
  3. FLUTICASONE?SALMETEROL INHALATION POWDER [Concomitant]
  4. AMLODIPINE 2.5 MG [Concomitant]
     Active Substance: AMLODIPINE BESYLATE
  5. DIVALPROEX SODIUM 250 MG [Concomitant]
  6. HALOPERIDOL. [Suspect]
     Active Substance: HALOPERIDOL
     Indication: AGITATION
     Route: 048
     Dates: start: 20201016, end: 20201201
  7. CHOLECALCIFEROL 1000IU [Concomitant]
  8. ATORVASTATIN 20 MG [Concomitant]
     Active Substance: ATORVASTATIN
  9. ISOSORBIDE DINITRATE 10 MG [Concomitant]
  10. ATROPINE 1% [Concomitant]
     Active Substance: ATROPINE
  11. ASPIRIN 81 MG [Concomitant]
     Active Substance: ASPIRIN
  12. MELATONIN 3 MG [Concomitant]

REACTIONS (8)
  - Restlessness [None]
  - Muscle spasms [None]
  - Gait disturbance [None]
  - Drooling [None]
  - Muscle rigidity [None]
  - Back pain [None]
  - Musculoskeletal stiffness [None]
  - Confusional state [None]

NARRATIVE: CASE EVENT DATE: 20201109
